FAERS Safety Report 4370132-5 (Version None)
Quarter: 2004Q2

REPORT INFORMATION
  Report Type: 
  Country: None (occurrence: None)
  Receive Date: 20040527
  Receipt Date: 20040511
  Transmission Date: 20050107
  Serious: Yes (Hospitalization)
  Sender: FDA-Public Use
  Company Number: DSA_23951_2004

PATIENT
  Sex: Male

DRUGS (1)
  1. LORAZEPAM [Suspect]
     Dosage: 1 TAB ONCE PO
     Route: 048

REACTIONS (3)
  - CIRCULATORY COLLAPSE [None]
  - COMA [None]
  - DYSPNOEA [None]
